FAERS Safety Report 12782843 (Version 1)
Quarter: 2016Q3

REPORT INFORMATION
  Report Type: Spontaneous
  Country: US (occurrence: US)
  Receive Date: 20160927
  Receipt Date: 20160927
  Transmission Date: 20161109
  Serious: Yes (Hospitalization, Other)
  Sender: FDA-Public Use
  Company Number: US-ROCHE-1835207

PATIENT
  Sex: Male

DRUGS (1)
  1. ESBRIET [Suspect]
     Active Substance: PIRFENIDONE
     Indication: IDIOPATHIC PULMONARY FIBROSIS
     Dosage: 2 DOSES THEN 3 DOSES
     Route: 065

REACTIONS (4)
  - Dizziness [Unknown]
  - Fall [Unknown]
  - Blood pressure increased [Unknown]
  - Asthenia [Unknown]

NARRATIVE: CASE EVENT DATE: 20160926
